FAERS Safety Report 10757137 (Version 1)
Quarter: 2015Q1

REPORT INFORMATION
  Report Type: Spontaneous
  Country: US (occurrence: US)
  Receive Date: 20150203
  Receipt Date: 20150203
  Transmission Date: 20150721
  Serious: No
  Sender: FDA-Public Use
  Company Number: US-DRREDDYS-USA/USA/14/0038896

PATIENT
  Age: 56 Year
  Sex: Male
  Weight: 88.53 kg

DRUGS (2)
  1. SIMVASTATIN. [Suspect]
     Active Substance: SIMVASTATIN
     Indication: BLOOD CHOLESTEROL INCREASED
     Route: 048
     Dates: start: 201304, end: 201307
  2. SIMVASTATIN. [Suspect]
     Active Substance: SIMVASTATIN
     Indication: HEART RATE IRREGULAR

REACTIONS (3)
  - Hyperhidrosis [Recovered/Resolved]
  - Abdominal pain [Recovering/Resolving]
  - Weight decreased [Recovering/Resolving]

NARRATIVE: CASE EVENT DATE: 201303
